FAERS Safety Report 15363761 (Version 4)
Quarter: 2019Q1

REPORT INFORMATION
  Report Type: Report from Study
  Country: US (occurrence: US)
  Receive Date: 20180908
  Receipt Date: 20190228
  Transmission Date: 20190417
  Serious: No
  Sender: FDA-Public Use
  Company Number: PHEH2018US037187

PATIENT
  Age: 77 Year
  Sex: Female

DRUGS (2)
  1. COSENTYX [Suspect]
     Active Substance: SECUKINUMAB
     Indication: PSORIASIS
  2. COSENTYX [Suspect]
     Active Substance: SECUKINUMAB
     Indication: GUTTATE PSORIASIS
     Dosage: 300 MG, QMO
     Route: 058
     Dates: start: 20180205

REACTIONS (8)
  - Rhinorrhoea [Unknown]
  - Nasopharyngitis [Unknown]
  - Device malfunction [Unknown]
  - Musculoskeletal pain [Unknown]
  - Sinusitis [Unknown]
  - Product use in unapproved indication [Unknown]
  - Intraocular pressure increased [Unknown]
  - Headache [Unknown]

NARRATIVE: CASE EVENT DATE: 20180917
